FAERS Safety Report 14897663 (Version 1)
Quarter: 2018Q2

REPORT INFORMATION
  Report Type: Report from Study
  Country: US (occurrence: US)
  Receive Date: 20180515
  Receipt Date: 20180515
  Transmission Date: 20180711
  Serious: Yes (Other)
  Sender: FDA-Public Use
  Company Number: US-BAYER-2018-090593

PATIENT

DRUGS (1)
  1. GADAVIST [Suspect]
     Active Substance: GADOBUTROL
     Indication: IMAGING PROCEDURE
     Dosage: UNK UNK, ONCE

REACTIONS (8)
  - Mental impairment [Recovering/Resolving]
  - Nontherapeutic agent urine positive [None]
  - Pain in extremity [Recovering/Resolving]
  - Contrast media deposition [None]
  - Pain [Recovering/Resolving]
  - Gadolinium deposition disease [None]
  - Headache [Recovering/Resolving]
  - Bone pain [Recovering/Resolving]
